FAERS Safety Report 11701366 (Version 4)
Quarter: 2016Q2

REPORT INFORMATION
  Report Type: Spontaneous
  Country: US (occurrence: US)
  Receive Date: 20151105
  Receipt Date: 20160519
  Transmission Date: 20160815
  Serious: Yes (Death, Life-Threatening, Hospitalization, Disabling, Other)
  Sender: FDA-Public Use
  Company Number: US-REGENERON PHARMACEUTICALS, INC.-2015-13432

PATIENT

DRUGS (11)
  1. OCUVITE [Concomitant]
     Active Substance: VITAMINS
     Indication: PRODUCT USED FOR UNKNOWN INDICATION
  2. OS CAL                             /01204201/ [Concomitant]
     Indication: PRODUCT USED FOR UNKNOWN INDICATION
  3. MULTIVITAMIN                       /00097801/ [Concomitant]
     Active Substance: VITAMINS
     Indication: PRODUCT USED FOR UNKNOWN INDICATION
  4. ASPIRIN                            /00002701/ [Concomitant]
     Active Substance: ASPIRIN
     Indication: PRODUCT USED FOR UNKNOWN INDICATION
  5. OMEGA 3                            /01333901/ [Concomitant]
     Active Substance: FISH OIL\TOCOPHEROL
     Indication: PRODUCT USED FOR UNKNOWN INDICATION
  6. GLUCOSAMIN CHONDROITIN             /01430901/ [Concomitant]
  7. EYLEA [Suspect]
     Active Substance: AFLIBERCEPT
     Dosage: UNK, OU
     Route: 031
     Dates: start: 20150929, end: 20150929
  8. FOSAMAX [Concomitant]
     Active Substance: ALENDRONATE SODIUM
     Indication: PRODUCT USED FOR UNKNOWN INDICATION
  9. LOTREL                             /01388302/ [Concomitant]
     Indication: PRODUCT USED FOR UNKNOWN INDICATION
  10. LIPITOR [Concomitant]
     Active Substance: ATORVASTATIN CALCIUM
     Indication: PRODUCT USED FOR UNKNOWN INDICATION
  11. EYLEA [Suspect]
     Active Substance: AFLIBERCEPT
     Indication: NEOVASCULAR AGE-RELATED MACULAR DEGENERATION
     Dosage: UNK, 6 TO 8 WEEKS
     Route: 031
     Dates: start: 20150728, end: 20150728

REACTIONS (7)
  - Heart rate increased [Unknown]
  - Blood pressure increased [Unknown]
  - Subarachnoid haemorrhage [Fatal]
  - Blindness [Unknown]
  - Intraocular pressure increased [Unknown]
  - Cold sweat [Unknown]
  - Memory impairment [Unknown]

NARRATIVE: CASE EVENT DATE: 20150929
